FAERS Safety Report 5786811-9 (Version None)
Quarter: 2008Q2

REPORT INFORMATION
  Report Type: 
  Country: None (occurrence: None)
  Receive Date: 20080618
  Receipt Date: 20080606
  Transmission Date: 20081010
  Serious: Yes (Hospitalization)
  Sender: FDA-Public Use
  Company Number: TCI2006A03628

PATIENT
  Age: 57 Year
  Sex: Male

DRUGS (1)
  1. LANSAP 400 (LANSOPRAZOLE, CLARITHROMYCIN, AMOXICILLIN) (PREPARATION FO [Suspect]
     Indication: HELICOBACTER INFECTION
     Dosage: 0.5 CARD (0,5 CARD,1 IN 1 D)   PER ORAL
     Route: 048
     Dates: start: 20060117, end: 20060118

REACTIONS (5)
  - BLISTER [None]
  - DRUG ERUPTION [None]
  - ERYTHEMA [None]
  - PAIN [None]
  - PARAESTHESIA [None]
